FAERS Safety Report 14565287 (Version 7)
Quarter: 2019Q3

REPORT INFORMATION
  Report Type: Report from Study
  Country: BR (occurrence: BR)
  Receive Date: 20180223
  Receipt Date: 20190916
  Transmission Date: 20191004
  Serious: Yes (Hospitalization, Other)
  Sender: FDA-Public Use
  Company Number: BR-ROCHE-1983783

PATIENT
  Age: 72 Year
  Sex: Female
  Weight: 78 kg

DRUGS (13)
  1. LOSARTAN. [Concomitant]
     Active Substance: LOSARTAN
     Indication: HYPERTENSION
     Dosage: UNK
     Route: 065
  2. XOLAIR [Suspect]
     Active Substance: OMALIZUMAB
     Route: 058
     Dates: start: 201809
  3. XOLAIR [Suspect]
     Active Substance: OMALIZUMAB
     Route: 058
  4. HYDROCHLOORTHIAZIDE [Concomitant]
     Active Substance: HYDROCHLOROTHIAZIDE
     Indication: HYPERTENSION
     Dosage: UNK
     Route: 065
  5. PREDNISONE. [Concomitant]
     Active Substance: PREDNISONE
     Indication: PRODUCT USED FOR UNKNOWN INDICATION
     Dosage: UNK
     Route: 065
  6. XOLAIR [Suspect]
     Active Substance: OMALIZUMAB
     Route: 058
     Dates: start: 201611
  7. XOLAIR [Suspect]
     Active Substance: OMALIZUMAB
     Route: 058
  8. ALLEGRA [Concomitant]
     Active Substance: FEXOFENADINE HYDROCHLORIDE
     Indication: DYSPNOEA
     Dosage: 1 DF, QD
     Route: 048
  9. RAMIPRIL. [Concomitant]
     Active Substance: RAMIPRIL
     Indication: PRODUCT USED FOR UNKNOWN INDICATION
     Dosage: UNK
     Route: 065
  10. XOLAIR [Suspect]
     Active Substance: OMALIZUMAB
     Indication: ASTHMA
     Dosage: 300 MG (2 AMPOULES), EVERY 15 DAYS
     Route: 058
     Dates: start: 2010
  11. APRESOLINA [Concomitant]
     Active Substance: HYDRALAZINE HYDROCHLORIDE
     Indication: HYPERTENSION
     Dosage: UNK
     Route: 065
  12. FORASEQ [Concomitant]
     Active Substance: BUDESONIDE\FORMOTEROL FUMARATE
     Indication: PRODUCT USED FOR UNKNOWN INDICATION
     Route: 065
  13. SPIRIVA [Concomitant]
     Active Substance: TIOTROPIUM BROMIDE MONOHYDRATE
     Indication: ASTHMA
     Dosage: 2.5 UG, QD
     Route: 055

REACTIONS (14)
  - Asthma [Unknown]
  - Bronchitis [Unknown]
  - Asthmatic crisis [Not Recovered/Not Resolved]
  - Swelling [Unknown]
  - Fatigue [Unknown]
  - Asthenia [Unknown]
  - Gait disturbance [Unknown]
  - Dyspnoea [Not Recovered/Not Resolved]
  - Wheezing [Not Recovered/Not Resolved]
  - Malaise [Unknown]
  - Hypokinesia [Unknown]
  - Depressed mood [Unknown]
  - Emphysema [Unknown]
  - Chest discomfort [Unknown]

NARRATIVE: CASE EVENT DATE: 201712
